FAERS Safety Report 24379912 (Version 2)
Quarter: 2024Q4

REPORT INFORMATION
  Report Type: Spontaneous
  Country: US (occurrence: US)
  Receive Date: 20240930
  Receipt Date: 20241016
  Transmission Date: 20250115
  Serious: Yes (Other)
  Sender: PFIZER
  Company Number: US-SEATTLE GENETICS-2018SGN01865

PATIENT
  Age: 61 Year
  Sex: Male

DRUGS (9)
  1. ADCETRIS [Suspect]
     Active Substance: BRENTUXIMAB VEDOTIN
     Indication: Hodgkin^s disease
     Dosage: 85 MG, EVERY OTHER WEEK
     Route: 042
     Dates: start: 20180411, end: 20180627
  2. ADCETRIS [Suspect]
     Active Substance: BRENTUXIMAB VEDOTIN
     Dosage: 64 MG
  3. ADCETRIS [Suspect]
     Active Substance: BRENTUXIMAB VEDOTIN
     Dosage: 0.9 MG/KG
  4. DOXORUBICIN HYDROCHLORIDE [Suspect]
     Active Substance: DOXORUBICIN HYDROCHLORIDE
     Dosage: UNK
     Dates: start: 20180411
  5. DACARBAZINE [Suspect]
     Active Substance: DACARBAZINE
     Indication: Hodgkin^s disease
     Dosage: UNK
     Dates: start: 20180411
  6. VINBLASTINE [Suspect]
     Active Substance: VINBLASTINE
     Indication: Hodgkin^s disease
     Dosage: UNK
     Dates: start: 20180411
  7. LIDOCAINE AND PRILOCAINE [Concomitant]
     Active Substance: LIDOCAINE\PRILOCAINE
     Dosage: 2.5-2.5 %
     Route: 061
  8. PROCHLORPERAZINE EDISYLATE [Concomitant]
     Active Substance: PROCHLORPERAZINE EDISYLATE
     Indication: Nausea
     Dosage: 10 MG, EVERY 8 HOURS AS NEEDED
     Route: 048
  9. ZOFRAN [Concomitant]
     Active Substance: ONDANSETRON HYDROCHLORIDE
     Indication: Nausea
     Dosage: 8 MG, EVERY 8 HOURS AS NEEDED
     Route: 048

REACTIONS (7)
  - Liver function test increased [Recovered/Resolved]
  - Febrile neutropenia [Unknown]
  - Nausea [Unknown]
  - Decreased appetite [Unknown]
  - Alopecia [Unknown]
  - Nocturia [Unknown]
  - Weight increased [Unknown]

NARRATIVE: CASE EVENT DATE: 20180711
